FAERS Safety Report 24965661 (Version 1)
Quarter: 2025Q1

REPORT INFORMATION
  Report Type: Spontaneous
  Country: US (occurrence: None)
  Receive Date: 20250211
  Receipt Date: 20250211
  Transmission Date: 20250408
  Serious: Yes (Other)
  Sender: FDA-CTU
  Company Number: None

PATIENT
  Age: 43 Year
  Sex: Male
  Weight: 90.72 kg

DRUGS (6)
  1. OLANZAPINE [Suspect]
     Active Substance: OLANZAPINE
  2. LAMICTAL [Concomitant]
     Active Substance: LAMOTRIGINE
  3. ZYPREXA [Concomitant]
     Active Substance: OLANZAPINE
  4. COGENTIN [Concomitant]
     Active Substance: BENZTROPINE MESYLATE
  5. daily men^s vitamin supplement [Concomitant]
  6. DIETARY SUPPLEMENT [Concomitant]
     Active Substance: DIETARY SUPPLEMENT

REACTIONS (4)
  - Erectile dysfunction [None]
  - Infertility male [None]
  - Prostatomegaly [None]
  - Spermatic cord perforation [None]

NARRATIVE: CASE EVENT DATE: 20200701
